FAERS Safety Report 8812979 (Version 1)
Quarter: 2012Q4

REPORT INFORMATION
  Report Type: 
  Country: US (occurrence: US)
  Receive Date: 20120927
  Receipt Date: 20120927
  Transmission Date: 20130627
  Serious: Yes (Hospitalization)
  Sender: FDA-Public Use
  Company Number: US-AMGEN-USASP2012036361

PATIENT
  Age: 40 Year
  Sex: Female

DRUGS (4)
  1. XGEVA [Suspect]
     Indication: PROPHYLAXIS
     Dosage: UNK
     Dates: start: 2011, end: 2012
  2. ABRAXANE [Concomitant]
     Dosage: UNK
  3. CARBOPLATIN [Concomitant]
     Dosage: UNK
  4. TAXOL [Concomitant]
     Dosage: UNK

REACTIONS (1)
  - Hypocalcaemia [Not Recovered/Not Resolved]
